FAERS Safety Report 6115618-8 (Version None)
Quarter: 2009Q1

REPORT INFORMATION
  Report Type: 
  Country: None (occurrence: None)
  Receive Date: 20090313
  Receipt Date: 20090303
  Transmission Date: 20090719
  Serious: Yes (Hospitalization, Other)
  Sender: FDA-Public Use
  Company Number: PHHY2009GB07900

PATIENT
  Age: 28 Year
  Sex: Female

DRUGS (7)
  1. CLOZAPINE [Suspect]
     Dosage: UNK
     Route: 048
     Dates: start: 20050623, end: 20081203
  2. ZAPONEX [Suspect]
     Dosage: 175 MG, UNK
     Route: 048
     Dates: start: 20081204, end: 20090211
  3. ZAPONEX [Suspect]
     Dosage: UNK
     Dates: start: 20090218
  4. ETHINYL ESTRADIOL AND LEVONORGESTREL [Concomitant]
     Indication: CONTRACEPTION
  5. CITALOPRAM HYDROBROMIDE [Concomitant]
  6. METFORMIN HCL [Concomitant]
  7. CALCIUM [Concomitant]

REACTIONS (4)
  - BLOOD CREATININE INCREASED [None]
  - JAUNDICE [None]
  - RENAL FAILURE ACUTE [None]
  - URINARY TRACT INFECTION [None]
